FAERS Safety Report 7346506-7 (Version None)
Quarter: 2011Q1

REPORT INFORMATION
  Report Type: 
  Country: None (occurrence: None)
  Receive Date: 20110311
  Receipt Date: 20100913
  Transmission Date: 20110831
  Serious: Yes (Hospitalization, Other)
  Sender: FDA-Public Use
  Company Number: US-BAYER-201021408NA

PATIENT
  Sex: Female
  Weight: 90.909 kg

DRUGS (8)
  1. ATENOLOL [Concomitant]
  2. PAMELOR [Concomitant]
  3. PREVACID [Concomitant]
  4. FLONASE [Concomitant]
     Dosage: UNK
     Dates: start: 20040503
  5. CHROMAGEN FORTE [Concomitant]
  6. YASMIN [Suspect]
     Indication: PREMENSTRUAL SYNDROME
     Route: 048
     Dates: start: 20020601, end: 20040430
  7. ZOLOFT [Concomitant]
     Dates: start: 19970101
  8. VANTIN [Concomitant]
     Dosage: UNK
     Dates: start: 20040503

REACTIONS (6)
  - CHOLELITHIASIS [None]
  - DEEP VEIN THROMBOSIS [None]
  - THROMBOSIS [None]
  - GALLBLADDER CHOLESTEROLOSIS [None]
  - PULMONARY EMBOLISM [None]
  - CHOLECYSTITIS CHRONIC [None]
